FAERS Safety Report 7531754-3 (Version None)
Quarter: 2011Q2

REPORT INFORMATION
  Report Type: 
  Country: None (occurrence: None)
  Receive Date: 20110601
  Receipt Date: 20110106
  Transmission Date: 20111010
  Serious: Yes (Other)
  Sender: FDA-Public Use
  Company Number: KR-20110001

PATIENT
  Age: 34 Year
  Sex: Male

DRUGS (2)
  1. HYSTOACRYL (N-BUTYL-2-CYANOCRYLATE) [Suspect]
     Indication: ENDOSCOPY
  2. LIPIODOL (ETHIODIZED OIL) [Suspect]
     Indication: ENDOSCOPY

REACTIONS (8)
  - OCULAR ICTERUS [None]
  - DYSPHAGIA [None]
  - INJECTION SITE ULCER [None]
  - INTRACARDIAC MASS [None]
  - ASCITES [None]
  - PYREXIA [None]
  - CHEST PAIN [None]
  - INTRACARDIAC THROMBUS [None]
